FAERS Safety Report 24554312 (Version 1)
Quarter: 2024Q4

REPORT INFORMATION
  Report Type: Spontaneous
  Country: GB (occurrence: GB)
  Receive Date: 20241028
  Receipt Date: 20241028
  Transmission Date: 20250115
  Serious: Yes (Other)
  Sender: INVENTIA HEALTHCARE LTD
  Company Number: GB-IHL-000617

PATIENT
  Age: 30 Year
  Sex: Male

DRUGS (1)
  1. COLESEVELAM [Suspect]
     Active Substance: COLESEVELAM
     Indication: Bile acid malabsorption
     Route: 065

REACTIONS (2)
  - Crohn^s disease [Unknown]
  - Disease recurrence [Unknown]
